FAERS Safety Report 9929524 (Version 1)
Quarter: 2014Q1

REPORT INFORMATION
  Report Type: Spontaneous
  Country: US (occurrence: US)
  Receive Date: 20140227
  Receipt Date: 20140227
  Transmission Date: 20141002
  Serious: No
  Sender: FDA-Public Use
  Company Number: US-PFIZER INC-2014054514

PATIENT
  Sex: Male

DRUGS (2)
  1. DILANTIN [Suspect]
     Indication: EPILEPSY
     Dosage: 300 MG (BY TAKING THREE ORAL CAPSULES OF 100MG), 1X/DAY
     Route: 048
  2. DILANTIN [Interacting]
     Dosage: 400 MG (1 CAPSULE OF 100MG IN MORNING AND 3 CAPSULES OF 100MG AT NIGHT) IN A DAY
     Route: 048

REACTIONS (5)
  - Food interaction [Unknown]
  - Anticonvulsant drug level abnormal [Unknown]
  - Irritability [Unknown]
  - Fatigue [Unknown]
  - Anticonvulsant drug level decreased [Unknown]
